FAERS Safety Report 26190007 (Version 1)
Quarter: 2025Q4

REPORT INFORMATION
  Report Type: Spontaneous
  Country: EU (occurrence: EU)
  Receive Date: 20251223
  Receipt Date: 20251223
  Transmission Date: 20260117
  Serious: Yes (Other)
  Sender: AUROBINDO
  Company Number: EU-AFSSAPS-NT2025001249

PATIENT
  Age: 47 Year
  Sex: Female
  Weight: 104 kg

DRUGS (3)
  1. QUETIAPINE [Suspect]
     Active Substance: QUETIAPINE
     Indication: Bipolar disorder
     Dosage: 800 MILLIGRAM, ONCE A DAY
     Route: 061
     Dates: start: 202405
  2. DEPAKOTE [Suspect]
     Active Substance: DIVALPROEX SODIUM
     Indication: Bipolar disorder
     Dosage: 2 GRAM, ONCE A DAY
     Route: 061
     Dates: start: 202401
  3. CYAMEMAZINE [Suspect]
     Active Substance: CYAMEMAZINE
     Indication: Bipolar disorder
     Dosage: 50 MILLIGRAM, ONCE A DAY
     Route: 061

REACTIONS (1)
  - Thrombocytopenia [Unknown]

NARRATIVE: CASE EVENT DATE: 20240101
